FAERS Safety Report 4594063-0 (Version None)
Quarter: 2005Q1

REPORT INFORMATION
  Report Type: 
  Country: None (occurrence: None)
  Receive Date: 20050301
  Receipt Date: 20050221
  Transmission Date: 20050727
  Serious: Yes (Hospitalization)
  Sender: FDA-Public Use
  Company Number: PHRM2005FR00909

PATIENT
  Age: 60 Year
  Sex: Male

DRUGS (1)
  1. FRACTAL [Suspect]
     Indication: HYPERCHOLESTEROLAEMIA
     Dosage: 80 MG, QD
     Route: 048
     Dates: start: 20020615, end: 20030919

REACTIONS (4)
  - PHYSIOTHERAPY [None]
  - TENDON OPERATION [None]
  - TENDON RUPTURE [None]
  - TENDONITIS [None]
